FAERS Safety Report 9240246 (Version 1)
Quarter: 2013Q1

REPORT INFORMATION
  Report Type: Spontaneous
  Country: US (occurrence: None)
  Receive Date: 20121109
  Receipt Date: 20121109
  Transmission Date: 20140127
  Serious: Yes (Other)
  Sender: FDA-Public Use
  Company Number: 1000036900

PATIENT
  Sex: Male

DRUGS (1)
  1. DILTIAZEM [Suspect]
     Indication: PALPITATIONS
     Route: 048
     Dates: start: 20120620, end: 20120625

REACTIONS (5)
  - Blood pressure increased [None]
  - Vision blurred [None]
  - Diplopia [None]
  - Headache [None]
  - Off label use [None]
